FAERS Safety Report 11993642 (Version 3)
Quarter: 2016Q1

REPORT INFORMATION
  Report Type: Spontaneous
  Country: JP (occurrence: JP)
  Receive Date: 20160203
  Receipt Date: 20160322
  Transmission Date: 20160526
  Serious: Yes (Hospitalization)
  Sender: FDA-Public Use
  Company Number: JP-ASTELLAS-2016JP001458AA

PATIENT
  Age: 19 Year
  Sex: Male

DRUGS (2)
  1. GRACEPTOR [Suspect]
     Active Substance: TACROLIMUS
     Indication: LIVER TRANSPLANT
     Route: 048
     Dates: end: 20160128
  2. GRACEPTOR [Suspect]
     Active Substance: TACROLIMUS
     Route: 050
     Dates: start: 20160201

REACTIONS (2)
  - Road traffic accident [Unknown]
  - Intentional product misuse [Unknown]

NARRATIVE: CASE EVENT DATE: 20160127
